FAERS Safety Report 23967365 (Version 4)
Quarter: 2025Q3

REPORT INFORMATION
  Report Type: Spontaneous
  Country: JP (occurrence: JP)
  Receive Date: 20240612
  Receipt Date: 20250728
  Transmission Date: 20251021
  Serious: Yes (Other)
  Sender: GENMAB
  Company Number: JP-GENMAB-2024-01985

PATIENT
  Age: 42 Year
  Sex: Female
  Weight: 44.2 kg

DRUGS (3)
  1. EPKINLY [Suspect]
     Active Substance: EPCORITAMAB-BYSP
     Indication: Diffuse large B-cell lymphoma refractory
     Route: 065
     Dates: start: 20240115, end: 20240115
  2. EPKINLY [Suspect]
     Active Substance: EPCORITAMAB-BYSP
     Route: 065
     Dates: start: 20240122, end: 20240122
  3. EPKINLY [Suspect]
     Active Substance: EPCORITAMAB-BYSP
     Route: 065
     Dates: start: 20240129, end: 20240425

REACTIONS (1)
  - Venoocclusive liver disease [Unknown]

NARRATIVE: CASE EVENT DATE: 20240501
